FAERS Safety Report 8605428-1 (Version None)
Quarter: 2012Q3

REPORT INFORMATION
  Report Type: 
  Country: None (occurrence: None)
  Receive Date: 20120807
  Receipt Date: 20120731
  Transmission Date: 20120928
  Serious: Yes (Death, Other)
  Sender: FDA-Public Use
  Company Number: US-2012-11033

PATIENT
  Age: 61 Year
  Sex: Male

DRUGS (3)
  1. FLUDARABINE PHOSPHATE [Concomitant]
  2. BUSULFEX [Suspect]
     Indication: BONE MARROW CONDITIONING REGIMEN
     Dosage: INTRAVENOUS
     Route: 042
  3. ALEMTUZUMAB (ALEMTUZUMAB) [Concomitant]

REACTIONS (8)
  - VENOOCCLUSIVE LIVER DISEASE [None]
  - PORTAL HYPERTENSION [None]
  - HEPATIC FAILURE [None]
  - LYMPHOPROLIFERATIVE DISORDER [None]
  - ATAXIA [None]
  - HEPATIC NECROSIS [None]
  - LETHARGY [None]
  - HEPATIC HAEMORRHAGE [None]
